FAERS Safety Report 4939839-2 (Version None)
Quarter: 2006Q1

REPORT INFORMATION
  Report Type: 
  Country: None (occurrence: None)
  Receive Date: 20060310
  Receipt Date: 20050616
  Transmission Date: 20060701
  Serious: Yes (Death, Hospitalization, Other)
  Sender: FDA-Public Use
  Company Number: US-MERCK-0506USA02718

PATIENT
  Age: 63 Year
  Sex: Male
  Weight: 82 kg

DRUGS (12)
  1. VIOXX [Suspect]
     Indication: OSTEOARTHRITIS
     Route: 048
     Dates: start: 19991105
  2. VIOXX [Suspect]
     Route: 048
     Dates: end: 20000801
  3. VIOXX [Suspect]
     Route: 048
     Dates: start: 20020320, end: 20021211
  4. VIOXX [Suspect]
     Indication: BACK PAIN
     Route: 048
     Dates: start: 19991105
  5. VIOXX [Suspect]
     Route: 048
     Dates: end: 20000801
  6. VIOXX [Suspect]
     Route: 048
     Dates: start: 20020320, end: 20021211
  7. METOPROLOL [Concomitant]
     Route: 065
  8. VICODIN [Concomitant]
     Route: 065
  9. LOPRESSOR [Concomitant]
     Route: 065
  10. ASPIRIN [Concomitant]
     Route: 065
  11. AMBIEN [Concomitant]
     Indication: INSOMNIA
     Route: 065
  12. KLONOPIN [Concomitant]
     Route: 065

REACTIONS (26)
  - ABDOMINAL PAIN [None]
  - ANXIETY DISORDER [None]
  - ARTERIOSCLEROSIS CORONARY ARTERY [None]
  - CARPAL TUNNEL SYNDROME [None]
  - CERVICAL SPINAL STENOSIS [None]
  - CONSTIPATION [None]
  - CORONARY ARTERY OCCLUSION [None]
  - DIABETES MELLITUS [None]
  - DRUG INEFFECTIVE [None]
  - DYSPHAGIA [None]
  - ESSENTIAL TREMOR [None]
  - HAEMORRHOIDS [None]
  - HYPERCHOLESTEROLAEMIA [None]
  - HYPOKALAEMIA [None]
  - HYPOTENSION [None]
  - INSOMNIA [None]
  - INTERVERTEBRAL DISC DEGENERATION [None]
  - MYOCARDIAL INFARCTION [None]
  - NECK PAIN [None]
  - NEUROPATHY PERIPHERAL [None]
  - PNEUMONIA [None]
  - RESPIRATORY ARREST [None]
  - SKIN DISORDER [None]
  - SPINAL DISORDER [None]
  - SPINAL OSTEOARTHRITIS [None]
  - SUPRAVENTRICULAR TACHYCARDIA [None]
